FAERS Safety Report 4379504-6 (Version None)
Quarter: 2004Q2

REPORT INFORMATION
  Report Type: 
  Country: None (occurrence: None)
  Receive Date: 20040614
  Receipt Date: 20040325
  Transmission Date: 20050107
  Serious: Yes (Disabling)
  Sender: FDA-Public Use
  Company Number: 04H-131-0262886-00

PATIENT
  Sex: Female

DRUGS (1)
  1. MEPERIDINE HCL [Suspect]
     Indication: DRUG EXPOSURE DURING PREGNANCY
     Dosage: 50 MG, INJECTION
     Dates: start: 20020101

REACTIONS (7)
  - BLINDNESS [None]
  - CEREBRAL PALSY [None]
  - CONGENITAL ANOMALY [None]
  - DEAFNESS [None]
  - DRUG EXPOSURE DURING PREGNANCY [None]
  - MOVEMENT DISORDER [None]
  - TRAUMATIC BRAIN INJURY [None]
